FAERS Safety Report 17551769 (Version 2)
Quarter: 2020Q2

REPORT INFORMATION
  Report Type: Spontaneous
  Country: US (occurrence: US)
  Receive Date: 20200317
  Receipt Date: 20200519
  Transmission Date: 20200713
  Serious: Yes (Other)
  Sender: FDA-Public Use
  Company Number: US-AKORN PHARMACEUTICALS-2020AKN00344

PATIENT
  Age: 16 Year
  Sex: Female
  Weight: 63.49 kg

DRUGS (1)
  1. MYORISAN [Suspect]
     Active Substance: ISOTRETINOIN
     Indication: ACNE
     Dosage: 40 MG, 1X/DAY
     Route: 048
     Dates: start: 20191223, end: 2020

REACTIONS (6)
  - Crying [Recovering/Resolving]
  - Mood swings [Recovering/Resolving]
  - Abnormal behaviour [Recovering/Resolving]
  - Depressed mood [Recovering/Resolving]
  - Off label use [Recovered/Resolved]
  - Irritability [Recovering/Resolving]

NARRATIVE: CASE EVENT DATE: 20191223
